FAERS Safety Report 12563949 (Version 1)
Quarter: 2016Q3

REPORT INFORMATION
  Report Type: Spontaneous
  Country: US (occurrence: US)
  Receive Date: 20160717
  Receipt Date: 20160717
  Transmission Date: 20161109
  Serious: No
  Sender: FDA-Public Use
  Company Number: US-ASTRAZENECA-2016SE54690

PATIENT
  Sex: Male

DRUGS (4)
  1. MOVANTIK [Suspect]
     Active Substance: NALOXEGOL OXALATE
     Route: 048
     Dates: start: 20160518
  2. AMITIZA [Concomitant]
     Active Substance: LUBIPROSTONE
  3. OMEPRAZOLE NOT SPECIFIED [Suspect]
     Active Substance: OMEPRAZOLE
     Route: 048
  4. PROBIOTIC COLON SUPPORT NOT SPECIFIED [Concomitant]

REACTIONS (5)
  - Intentional product use issue [Unknown]
  - Abdominal pain upper [None]
  - Anal incontinence [None]
  - Diarrhoea [Unknown]
  - Drug withdrawal syndrome [Unknown]

NARRATIVE: CASE EVENT DATE: 20160518
